FAERS Safety Report 15439501 (Version 2)
Quarter: 2021Q1

REPORT INFORMATION
  Report Type: Spontaneous
  Country: US (occurrence: US)
  Receive Date: 20180928
  Receipt Date: 20210219
  Transmission Date: 20210419
  Serious: Yes (Disabling)
  Sender: FDA-Public Use
  Company Number: US-TEVA-2018-US-958531

PATIENT
  Age: 57 Year
  Sex: Female
  Weight: 170 kg

DRUGS (4)
  1. ACTINOMYCIN D [Concomitant]
     Active Substance: DACTINOMYCIN
     Route: 065
  2. HERCEPTIN [Concomitant]
     Active Substance: TRASTUZUMAB
     Route: 065
  3. TAXOTERE [Suspect]
     Active Substance: DOCETAXEL
     Dosage: DOSAGE: 35MG, NUMBER OF CYCLES: 13, FREQUENCY: 1 CYCLE EVERY THREE WEEKS
     Route: 065
  4. DOCETAXEL. [Suspect]
     Active Substance: DOCETAXEL
     Indication: BREAST CANCER
     Dosage: DOSAGE: 35MG, NUMBER OF CYCLES: 13, FREQUENCY: 1 CYCLE EVERY THREE WEEKS
     Route: 065
     Dates: start: 20130218, end: 20140224

REACTIONS (4)
  - Hair texture abnormal [Not Recovered/Not Resolved]
  - Madarosis [Not Recovered/Not Resolved]
  - Alopecia areata [Not Recovered/Not Resolved]
  - Hair colour changes [Not Recovered/Not Resolved]

NARRATIVE: CASE EVENT DATE: 20141201
